FAERS Safety Report 19650353 (Version 1)
Quarter: 2021Q3

REPORT INFORMATION
  Report Type: Report from Study
  Country: AR (occurrence: AR)
  Receive Date: 20210803
  Receipt Date: 20210803
  Transmission Date: 20211014
  Serious: Yes (Other)
  Sender: FDA-Public Use
  Company Number: NVSC2021AR117175

PATIENT
  Age: 45 Year
  Sex: Female

DRUGS (5)
  1. KISQALI [Suspect]
     Active Substance: RIBOCICLIB
     Indication: BREAST CANCER METASTATIC
     Dosage: 600 MG, QD (TOOK IT FOR 21 DAYS AND REST 14 DAYS)
     Route: 048
     Dates: start: 20191207
  2. TRAMADOL. [Concomitant]
     Active Substance: TRAMADOL
     Indication: PRODUCT USED FOR UNKNOWN INDICATION
     Dosage: 20 MG, Q8H (1 OF 20 MG)
     Route: 065
     Dates: start: 202105
  3. ZOLEDRONIC ACID [Suspect]
     Active Substance: ZOLEDRONIC ACID
     Indication: PRODUCT USED FOR UNKNOWN INDICATION
     Dosage: UNK, QMO (EVERY 28 DAYS)
     Route: 065
     Dates: start: 2018
  4. PARACETAMOL [Concomitant]
     Active Substance: ACETAMINOPHEN
     Indication: PRODUCT USED FOR UNKNOWN INDICATION
     Dosage: 1 G, Q8H (1 OF 1GR)
     Route: 065
  5. LETROZOLE. [Suspect]
     Active Substance: LETROZOLE
     Indication: PRODUCT USED FOR UNKNOWN INDICATION
     Dosage: UNK UNK, QMO (EVERY 28 DAYS)
     Route: 065
     Dates: start: 2018

REACTIONS (3)
  - Metastases to spine [Unknown]
  - Pain [Unknown]
  - Metastasis [Recovering/Resolving]

NARRATIVE: CASE EVENT DATE: 201912
